FAERS Safety Report 6368549-2 (Version None)
Quarter: 2009Q3

REPORT INFORMATION
  Report Type: 
  Country: None (occurrence: None)
  Receive Date: 20090922
  Receipt Date: 20090911
  Transmission Date: 20100115
  Serious: Yes (Other)
  Sender: FDA-Public Use
  Company Number: US-JNJFOC-20090904064

PATIENT
  Sex: Male
  Weight: 84.82 kg

DRUGS (3)
  1. REMICADE [Suspect]
     Indication: ANKYLOSING SPONDYLITIS
     Route: 042
     Dates: start: 20020429
  2. ULTRAM [Concomitant]
     Indication: PAIN
     Dosage: AS NEEDED
  3. INDOCIN [Concomitant]
     Indication: ARTHRALGIA

REACTIONS (1)
  - PARKINSON'S DISEASE [None]
